FAERS Safety Report 6874028-6 (Version None)
Quarter: 2010Q3

REPORT INFORMATION
  Report Type: 
  Country: None (occurrence: None)
  Receive Date: 20100721
  Receipt Date: 20100712
  Transmission Date: 20110219
  Serious: Yes (Other)
  Sender: FDA-Public Use
  Company Number: 2010US002747

PATIENT
  Age: 64 Year
  Sex: Male

DRUGS (2)
  1. VAPRISOL [Suspect]
     Indication: HYPONATRAEMIA
     Dosage: 20 MG, TOTAL DOSE, IV BOLUS
     Route: 040
  2. VAPRISOL [Suspect]
     Dosage: 20 MG, UID/QD, IV DRIP
     Route: 041

REACTIONS (2)
  - HYPOTENSION [None]
  - HYPOVOLAEMIA [None]
